FAERS Safety Report 13093253 (Version 2)
Quarter: 2017Q1

REPORT INFORMATION
  Report Type: Spontaneous
  Country: US (occurrence: US)
  Receive Date: 20170106
  Receipt Date: 20170112
  Transmission Date: 20170428
  Serious: Yes (Other)
  Sender: FDA-Public Use
  Company Number: US-JNJFOC-20170100296

PATIENT
  Age: 47 Year
  Sex: Female

DRUGS (4)
  1. ONDANSETRON HCL [Concomitant]
     Active Substance: ONDANSETRON HYDROCHLORIDE
     Route: 048
  2. CIPROFLOXACIN HCL [Concomitant]
     Active Substance: CIPROFLOXACIN HYDROCHLORIDE
     Route: 048
  3. AZATHIOPRINE. [Concomitant]
     Active Substance: AZATHIOPRINE
     Route: 048
     Dates: start: 20160727
  4. REMICADE [Suspect]
     Active Substance: INFLIXIMAB
     Indication: CROHN^S DISEASE
     Route: 042
     Dates: start: 201606

REACTIONS (6)
  - Crohn^s disease [Recovering/Resolving]
  - Pyoderma gangrenosum [Unknown]
  - Fistula [Unknown]
  - Rhinorrhoea [Unknown]
  - Anaemia [Unknown]
  - Joint swelling [Unknown]

NARRATIVE: CASE EVENT DATE: 201606
